FAERS Safety Report 5780560-9 (Version None)
Quarter: 2008Q2

REPORT INFORMATION
  Report Type: 
  Country: None (occurrence: None)
  Receive Date: 20080620
  Receipt Date: 20080611
  Transmission Date: 20081010
  Serious: Yes (Hospitalization)
  Sender: FDA-Public Use
  Company Number: US-SANOFI-SYNTHELABO-A03200801491

PATIENT
  Sex: Male
  Weight: 59.9 kg

DRUGS (11)
  1. UROXATRAL [Suspect]
     Indication: URINARY RETENTION
     Route: 048
     Dates: start: 20080416, end: 20080416
  2. MAGNESIUM CITRATE [Concomitant]
     Indication: DRUG USE FOR UNKNOWN INDICATION
     Dosage: UNK
     Route: 065
  3. MIRALEX [Concomitant]
     Indication: DRUG USE FOR UNKNOWN INDICATION
     Dosage: UNK
     Route: 065
  4. AMANTADINE HCL [Concomitant]
     Indication: PARKINSONISM
     Route: 048
  5. LEVAQUIN [Concomitant]
     Indication: DRUG USE FOR UNKNOWN INDICATION
     Dosage: UNK
     Route: 065
  6. ASPIRIN [Concomitant]
     Indication: PROPHYLAXIS
     Route: 048
  7. GLIPIZIDE [Concomitant]
     Indication: DIABETES MELLITUS
     Route: 048
  8. AVAPRO [Concomitant]
     Indication: HYPERTENSION
     Route: 048
  9. LIPITOR [Concomitant]
     Indication: BLOOD CHOLESTEROL INCREASED
     Route: 048
  10. ATROPINE [Concomitant]
     Indication: DRUG USE FOR UNKNOWN INDICATION
     Dosage: 1 % FOR HIS RIGHT EYE
     Route: 047
  11. VEXOL [Concomitant]
     Indication: DRUG USE FOR UNKNOWN INDICATION
     Dosage: 1 % FOR HIS RIGHT EYE
     Route: 047

REACTIONS (7)
  - AGITATION [None]
  - CEREBROVASCULAR ACCIDENT [None]
  - DISORIENTATION [None]
  - DYSKINESIA [None]
  - HAEMORRHAGE [None]
  - HALLUCINATION [None]
  - INSOMNIA [None]
